FAERS Safety Report 11677094 (Version 1)
Quarter: 2015Q4

REPORT INFORMATION
  Report Type: Spontaneous
  Country: HR (occurrence: HR)
  Receive Date: 20151028
  Receipt Date: 20151028
  Transmission Date: 20160304
  Serious: Yes (Hospitalization)
  Sender: FDA-Public Use
  Company Number: HR-TEVA-603004ISR

PATIENT
  Age: 36 Year
  Sex: Female
  Weight: 49 kg

DRUGS (4)
  1. LEPONEX [Suspect]
     Active Substance: CLOZAPINE
     Indication: SCHIZOPHRENIA, PARANOID TYPE
     Route: 048
     Dates: start: 20110803
  2. NORMABEL [Concomitant]
     Active Substance: DIAZEPAM
     Dosage: 15 MILLIGRAM DAILY; 5 MG; DO 3X1 DRAG P.P.
     Route: 048
     Dates: start: 20121207
  3. FEVARIN [Concomitant]
     Active Substance: FLUVOXAMINE MALEATE
     Dosage: 100 MILLIGRAM DAILY; 100 MG; 1 TBL. NAVECER
     Route: 048
     Dates: start: 20130326
  4. RISSET [Suspect]
     Active Substance: RISPERIDONE
     Indication: SCHIZOPHRENIA, PARANOID TYPE
     Dosage: 6 MILLIGRAM DAILY;
     Route: 048
     Dates: start: 20121107, end: 20150309

REACTIONS (3)
  - Amenorrhoea [Recovering/Resolving]
  - Osteoporosis [Recovering/Resolving]
  - Hyperprolactinaemia [Unknown]

NARRATIVE: CASE EVENT DATE: 20121231
